FAERS Safety Report 8413222-X (Version None)
Quarter: 2012Q2

REPORT INFORMATION
  Report Type: 
  Country: None (occurrence: None)
  Receive Date: 20120605
  Receipt Date: 20120525
  Transmission Date: 20120825
  Serious: Yes (Life-Threatening)
  Sender: FDA-Public Use
  Company Number: JP-AMGEN-JPNCT2012026491

PATIENT
  Age: 72 Year
  Sex: Female
  Weight: 30 kg

DRUGS (9)
  1. MIYA-BM [Concomitant]
     Route: 048
     Dates: start: 20120229
  2. PASTARON [Concomitant]
     Route: 062
     Dates: start: 20120229
  3. HIRUDOID [Concomitant]
     Route: 062
     Dates: start: 20120229
  4. LORFENAMIN [Concomitant]
     Route: 048
     Dates: start: 20120229
  5. PROCHLORPERAZINE [Concomitant]
     Route: 048
     Dates: start: 20120229
  6. PANITUMUMAB [Suspect]
     Indication: COLORECTAL CANCER
     Dosage: UNK, Q2WK
     Route: 041
     Dates: start: 20120228
  7. PROTECADIN [Concomitant]
     Route: 048
     Dates: start: 20120229
  8. REBAMIPIDE [Concomitant]
     Route: 048
     Dates: start: 20120229
  9. OXYCONTIN [Concomitant]
     Route: 048
     Dates: start: 20120229

REACTIONS (4)
  - PLEURAL EFFUSION [None]
  - MYOCARDIAL INFARCTION [None]
  - DYSPNOEA [None]
  - ARTERIOSPASM CORONARY [None]
